FAERS Safety Report 5189886-3 (Version None)
Quarter: 2006Q4

REPORT INFORMATION
  Report Type: 
  Country: None (occurrence: None)
  Receive Date: 20061218
  Receipt Date: 20061206
  Transmission Date: 20070319
  Serious: Yes (Other)
  Sender: FDA-Public Use
  Company Number: 2006101697

PATIENT
  Age: 25 Year
  Sex: Female

DRUGS (3)
  1. DEPO-PROVERA [Suspect]
     Indication: CONTRACEPTION
     Dosage: SEE IMAGE
     Route: 030
     Dates: start: 20060701, end: 20060701
  2. DEPO-PROVERA [Suspect]
     Indication: CONTRACEPTION
     Dosage: SEE IMAGE
     Route: 030
     Dates: start: 20061108, end: 20061108
  3. NORETHINDRONE ACETATE [Concomitant]

REACTIONS (10)
  - ABDOMINAL PAIN [None]
  - DIZZINESS [None]
  - FALL [None]
  - HUNGER [None]
  - INSOMNIA [None]
  - INTENTIONAL DRUG MISUSE [None]
  - MIGRAINE [None]
  - NAUSEA [None]
  - VOMITING [None]
  - WEIGHT INCREASED [None]
